FAERS Safety Report 15433397 (Version 1)
Quarter: 2018Q3

REPORT INFORMATION
  Report Type: Spontaneous
  Country: US (occurrence: US)
  Receive Date: 20180921
  Receipt Date: 20180921
  Transmission Date: 20181010
  Serious: Yes (Other)
  Sender: FDA-Public Use
  Company Number: None

PATIENT
  Age: 39 Year
  Sex: Female
  Weight: 70.65 kg

DRUGS (3)
  1. SODIUM SULFACETAMIDE ? SULFUR WASH [Suspect]
     Active Substance: SULFACETAMIDE\SULFUR
     Indication: ACNE
     Dosage: ?          QUANTITY:16 OUNCE(S);OTHER ROUTE:FACE WASH? USED TWICE A DAY?
     Dates: start: 20111205, end: 20180920
  2. WOMENS ONE A DAY VITAMIN [Concomitant]
  3. NAPROXEN. [Concomitant]
     Active Substance: NAPROXEN

REACTIONS (2)
  - Lupus-like syndrome [None]
  - Arthralgia [None]

NARRATIVE: CASE EVENT DATE: 20170904
